FAERS Safety Report 21350277 (Version 1)
Quarter: 2022Q3

REPORT INFORMATION
  Report Type: Report from Study
  Country: CA (occurrence: CA)
  Receive Date: 20220919
  Receipt Date: 20220919
  Transmission Date: 20221027
  Serious: Yes (Other)
  Sender: FDA-Public Use
  Company Number: CA-BAYER-2022A127424

PATIENT
  Age: 43 Year
  Sex: Female

DRUGS (3)
  1. BETASERON [Suspect]
     Active Substance: INTERFERON BETA-1B
     Indication: Multiple sclerosis
     Dosage: 8MIU
     Dates: start: 20081001
  2. SYNTHROID [Concomitant]
     Active Substance: LEVOTHYROXINE SODIUM
     Indication: Hypothyroidism
  3. IBUPROFEN [Concomitant]
     Active Substance: IBUPROFEN

REACTIONS (9)
  - Chills [None]
  - Chills [None]
  - Influenza like illness [None]
  - Myalgia [None]
  - Restlessness [None]
  - Extremity necrosis [None]
  - Soft tissue necrosis [None]
  - Hypothyroidism [Not Recovered/Not Resolved]
  - Intentional dose omission [None]

NARRATIVE: CASE EVENT DATE: 20100101
